FAERS Safety Report 8383811-X (Version None)
Quarter: 2012Q2

REPORT INFORMATION
  Report Type: 
  Country: None (occurrence: None)
  Receive Date: 20120524
  Receipt Date: 20120517
  Transmission Date: 20120825
  Serious: Yes (Death, Hospitalization)
  Sender: FDA-Public Use
  Company Number: JP-NAPPMUNDI-MAG-2012-0002146

PATIENT
  Sex: Male

DRUGS (4)
  1. NEXIUM [Concomitant]
     Indication: DECREASED APPETITE
     Dosage: UNK
     Route: 048
     Dates: start: 20120418, end: 20120418
  2. EXELON [Concomitant]
     Route: 061
  3. LANSOPRAZOLE [Concomitant]
     Route: 048
  4. BUPRENORPHINE [Suspect]
     Indication: OSTEOARTHRITIS
     Dosage: UNK
     Route: 062
     Dates: start: 20120410, end: 20120418

REACTIONS (1)
  - RENAL FAILURE ACUTE [None]
